FAERS Safety Report 7180490-4 (Version None)
Quarter: 2010Q4

REPORT INFORMATION
  Report Type: 
  Country: None (occurrence: None)
  Receive Date: 20101221
  Receipt Date: 20101216
  Transmission Date: 20110411
  Serious: Yes (Other)
  Sender: FDA-Public Use
  Company Number: CHPA2010US19109

PATIENT
  Age: 2 Year
  Sex: Male
  Weight: 18.141 kg

DRUGS (1)
  1. EX-LAX REG STR CHOCOLATED LAX PCS SEN (NCH) [Suspect]
     Dosage: 60 MG, ONCE/SINGLE
     Route: 048
     Dates: start: 20101214, end: 20101214

REACTIONS (4)
  - ACCIDENTAL DRUG INTAKE BY CHILD [None]
  - ACCIDENTAL OVERDOSE [None]
  - FAECAL INCONTINENCE [None]
  - THERMAL BURN [None]
